FAERS Safety Report 8472504-6 (Version None)
Quarter: 2012Q2

REPORT INFORMATION
  Report Type: 
  Country: None (occurrence: None)
  Receive Date: 20120627
  Receipt Date: 20120126
  Transmission Date: 20120825
  Serious: No
  Sender: FDA-Public Use
  Company Number: US-AMGEN-USASP2012006369

PATIENT
  Age: 56 Year
  Sex: Male
  Weight: 83 kg

DRUGS (8)
  1. INTERFERON [Concomitant]
     Indication: HEPATITIS C
     Dosage: UNK UNK, QWK
     Route: 058
     Dates: start: 20111023
  2. AMBIEN [Concomitant]
     Indication: INSOMNIA
     Dosage: 10 MG, QD
     Dates: start: 20120104
  3. PROCRIT [Suspect]
     Indication: ANAEMIA
     Dosage: UNK UNK, QMO
     Route: 058
     Dates: start: 20120120
  4. RIBAVIRIN [Concomitant]
     Indication: HEPATITIS C
     Dosage: 400 MG, BID
     Route: 048
     Dates: start: 20111023
  5. PEGASYS [Concomitant]
     Indication: HEPATITIS C
     Dosage: 90 MUG, QWK
     Dates: start: 20111023, end: 20111201
  6. PEGASYS [Concomitant]
     Dosage: 45 MUG, QWK
  7. BOCEPREVIR [Concomitant]
     Indication: HEPATITIS C
     Dosage: 800 MG, TID
     Route: 048
     Dates: start: 20111101
  8. PEGASYS [Concomitant]
     Dosage: 60 MUG, QWK
     Dates: start: 20111201

REACTIONS (1)
  - ENERGY INCREASED [None]
